FAERS Safety Report 5373706-8 (Version None)
Quarter: 2007Q2

REPORT INFORMATION
  Report Type: 
  Country: None (occurrence: None)
  Receive Date: 20070621
  Receipt Date: 20060810
  Transmission Date: 20071010
  Serious: Yes (Other)
  Sender: FDA-Public Use
  Company Number: 26311

PATIENT
  Age: 4 Year
  Sex: Male
  Weight: 16 kg

DRUGS (1)
  1. ACYCLOVIR [Suspect]
     Indication: VARICELLA
     Dosage: 500MG/M2 IV
     Route: 042
     Dates: start: 20060328, end: 20060330

REACTIONS (1)
  - EXTRAVASATION [None]
